FAERS Safety Report 4784089-6 (Version None)
Quarter: 2005Q3

REPORT INFORMATION
  Report Type: 
  Country: None (occurrence: None)
  Receive Date: 20050930
  Receipt Date: 20050609
  Transmission Date: 20060218
  Serious: Yes (Other)
  Sender: FDA-Public Use
  Company Number: US-GLAXOSMITHKLINE-A0562019A

PATIENT
  Sex: Male

DRUGS (5)
  1. FLOVENT [Suspect]
     Indication: ASTHMA
     Dosage: 2PUFF TWICE PER DAY
     Route: 055
     Dates: start: 20050401
  2. COMBIVENT [Concomitant]
  3. PREDNISONE [Concomitant]
  4. ACCOLATE [Concomitant]
  5. ALBUTEROL [Concomitant]

REACTIONS (1)
  - ASTHMA [None]
